FAERS Safety Report 5239115-7 (Version None)
Quarter: 2007Q1

REPORT INFORMATION
  Report Type: 
  Country: None (occurrence: None)
  Receive Date: 20070209
  Receipt Date: 20070130
  Transmission Date: 20070707
  Serious: Yes (Other)
  Sender: FDA-Public Use
  Company Number: GXKR2007GB01287

PATIENT
  Age: 47 Year
  Sex: Female
  Weight: 50 kg

DRUGS (3)
  1. CEFUROXIME [Suspect]
     Indication: PROPHYLAXIS
     Dosage: 1.5 G, INTRAVENOUS
     Route: 042
     Dates: start: 20061001
  2. IBUPROFEN [Concomitant]
  3. ACETAMINOPHEN [Concomitant]

REACTIONS (4)
  - PHARYNGEAL OEDEMA [None]
  - RESPIRATORY DISORDER [None]
  - SWELLING [None]
  - WHEEZING [None]
